FAERS Safety Report 8886504 (Version 2)
Quarter: 2013Q3

REPORT INFORMATION
  Report Type: Spontaneous
  Country: US (occurrence: US)
  Receive Date: 20121105
  Receipt Date: 20130710
  Transmission Date: 20140515
  Serious: Yes (Hospitalization, Disabling, Other)
  Sender: FDA-Public Use
  Company Number: US-009507513-1210USA012359

PATIENT
  Sex: Female
  Weight: 55.78 kg

DRUGS (6)
  1. FOSAMAX [Suspect]
     Indication: OSTEOPOROSIS
     Dosage: 70 MG, QD
     Route: 048
     Dates: end: 2001
  2. FOSAMAX [Suspect]
     Dosage: 10 MG, UNK
     Route: 048
  3. ALENDRONATE SODIUM [Suspect]
     Dosage: 70 MG, UNK
  4. THYROID [Concomitant]
     Indication: HYPOTHYROIDISM
  5. VITAMIN D (UNSPECIFIED) [Concomitant]
     Dosage: UNK
     Dates: start: 1985
  6. CALCIUM (UNSPECIFIED) [Concomitant]
     Dosage: UNK
     Dates: start: 1985

REACTIONS (12)
  - Femur fracture [Not Recovered/Not Resolved]
  - Open reduction of fracture [Unknown]
  - Medical device removal [Unknown]
  - Low turnover osteopathy [Unknown]
  - Depression [Unknown]
  - Radius fracture [Unknown]
  - Cachexia [Unknown]
  - Cardiac murmur [Unknown]
  - Insomnia [Unknown]
  - Ankle fracture [Unknown]
  - Nausea [Unknown]
  - Inappropriate schedule of drug administration [Unknown]
